FAERS Safety Report 5267080-5 (Version None)
Quarter: 2007Q1

REPORT INFORMATION
  Report Type: 
  Country: None (occurrence: None)
  Receive Date: 20070316
  Receipt Date: 20070306
  Transmission Date: 20070707
  Serious: Yes (Other)
  Sender: FDA-Public Use
  Company Number: PHBS2007JP03476

PATIENT
  Age: 16 Year
  Sex: Female

DRUGS (4)
  1. CYCLOSPORINE [Suspect]
     Indication: BONE MARROW TRANSPLANT
  2. METHOTREXATE [Suspect]
     Indication: BONE MARROW TRANSPLANT
  3. CYCLOPHOSPHAMIDE [Suspect]
     Indication: BONE MARROW TRANSPLANT
  4. IRRADIATION [Suspect]
     Indication: BONE MARROW TRANSPLANT
     Dosage: 12 GY

REACTIONS (4)
  - ANOREXIA [None]
  - ELECTROENCEPHALOGRAM ABNORMAL [None]
  - PYREXIA [None]
  - SOMNOLENCE [None]
